FAERS Safety Report 19190524 (Version 1)
Quarter: 2021Q2

REPORT INFORMATION
  Report Type: Spontaneous
  Country: US (occurrence: US)
  Receive Date: 20210428
  Receipt Date: 20210428
  Transmission Date: 20210717
  Serious: No
  Sender: FDA-Public Use
  Company Number: US-SA-2021SA137866

PATIENT
  Sex: Male

DRUGS (1)
  1. DUPIXENT [Suspect]
     Active Substance: DUPILUMAB
     Indication: ECZEMA
     Dosage: 300 MG, QOW
     Route: 058
     Dates: start: 20200831

REACTIONS (6)
  - Rash [Unknown]
  - Eczema [Unknown]
  - Product dose omission issue [Unknown]
  - Sleep disorder [Unknown]
  - Scratch [Unknown]
  - Skin discomfort [Unknown]

NARRATIVE: CASE EVENT DATE: 2020
